FAERS Safety Report 13810447 (Version 1)
Quarter: 2017Q3

REPORT INFORMATION
  Report Type: Spontaneous
  Country: US (occurrence: US)
  Receive Date: 20170728
  Receipt Date: 20170728
  Transmission Date: 20171127
  Serious: Yes (Death)
  Sender: FDA-Public Use
  Company Number: US-ACTELION-A-NJ2017-157240

PATIENT
  Age: 90 Year
  Sex: Female

DRUGS (14)
  1. SPIRONOLACTONE. [Concomitant]
     Active Substance: SPIRONOLACTONE
  2. GLIPIZIDE. [Concomitant]
     Active Substance: GLIPIZIDE
  3. KALEXATE [Concomitant]
     Active Substance: SODIUM POLYSTYRENE SULFONATE
  4. DIOVAN [Concomitant]
     Active Substance: VALSARTAN
  5. TORSEMIDE. [Concomitant]
     Active Substance: TORSEMIDE
  6. CRESTOR [Concomitant]
     Active Substance: ROSUVASTATIN CALCIUM
  7. IBANDRONATE SODIUM. [Concomitant]
     Active Substance: IBANDRONATE SODIUM
  8. METOPROLOL SUCCINATE. [Concomitant]
     Active Substance: METOPROLOL SUCCINATE
  9. SODIUM POLYSTYRENE SULFONATE. [Concomitant]
     Active Substance: SODIUM POLYSTYRENE SULFONATE
  10. OPSUMIT [Suspect]
     Active Substance: MACITENTAN
     Indication: PULMONARY ARTERIAL HYPERTENSION
     Dosage: 10 MG, UNK
     Route: 048
     Dates: start: 20170427
  11. MUPIROCIN. [Concomitant]
     Active Substance: MUPIROCIN
  12. MULTIVITAMIN [Concomitant]
     Active Substance: VITAMINS
  13. XARELTO [Concomitant]
     Active Substance: RIVAROXABAN
  14. LANSOPRAZOLE. [Concomitant]
     Active Substance: LANSOPRAZOLE

REACTIONS (1)
  - Death [Fatal]

NARRATIVE: CASE EVENT DATE: 201707
